FAERS Safety Report 19121904 (Version 1)
Quarter: 2021Q2

REPORT INFORMATION
  Report Type: Spontaneous
  Country: US (occurrence: US)
  Receive Date: 20210412
  Receipt Date: 20210412
  Transmission Date: 20210717
  Serious: No
  Sender: FDA-Public Use
  Company Number: None

PATIENT

DRUGS (2)
  1. ANASTROZOLE. [Suspect]
     Active Substance: ANASTROZOLE
     Indication: MASTECTOMY
     Dosage: ?          QUANTITY:1 MG MILLIGRAM(S);?
     Route: 048
     Dates: start: 20210301, end: 20210304
  2. ANASTROZOLE. [Suspect]
     Active Substance: ANASTROZOLE
     Indication: ANTIOESTROGEN THERAPY
     Dosage: ?          QUANTITY:1 MG MILLIGRAM(S);?
     Route: 048
     Dates: start: 20210301, end: 20210304

REACTIONS (7)
  - Feeling abnormal [None]
  - Blood pressure measurement [None]
  - Photopsia [None]
  - Ocular hyperaemia [None]
  - Muscular weakness [None]
  - Diarrhoea [None]
  - Visual impairment [None]

NARRATIVE: CASE EVENT DATE: 20210303
